FAERS Safety Report 16981794 (Version 1)
Quarter: 2019Q4

REPORT INFORMATION
  Report Type: Spontaneous
  Country: US (occurrence: US)
  Receive Date: 20191101
  Receipt Date: 20191101
  Transmission Date: 20200122
  Serious: No
  Sender: FDA-Public Use
  Company Number: US-JNJFOC-20191042712

PATIENT
  Age: 26 Year
  Sex: Male
  Weight: 72.64 kg

DRUGS (2)
  1. HEAD AND SHOULDERS [Concomitant]
     Active Substance: PYRITHIONE ZINC
     Indication: PRODUCT USED FOR UNKNOWN INDICATION
     Route: 061
  2. MENS ROGAINE EXTRA STRENGTH [Suspect]
     Active Substance: MINOXIDIL
     Indication: ALOPECIA
     Route: 061
     Dates: start: 20191016, end: 20191024

REACTIONS (2)
  - Heart rate irregular [Recovered/Resolved]
  - Chest pain [Recovering/Resolving]

NARRATIVE: CASE EVENT DATE: 20191023
